FAERS Safety Report 16091567 (Version 2)
Quarter: 2019Q1

REPORT INFORMATION
  Report Type: Spontaneous
  Country: US (occurrence: US)
  Receive Date: 20190319
  Receipt Date: 20190322
  Transmission Date: 20190418
  Serious: Yes (Other)
  Sender: FDA-Public Use
  Company Number: US-PFIZER INC-2018114545

PATIENT
  Age: 13 Year
  Sex: Male

DRUGS (1)
  1. GENOTROPIN MQ [Suspect]
     Active Substance: SOMATROPIN
     Indication: BLOOD GROWTH HORMONE
     Dosage: 2.2 MG, DAILY [2MG AND 0.2MG MINIQUICK, DAILY (FOR TOTAL DAILY DOSE OF 2.2MG)]
     Dates: start: 20090508

REACTIONS (3)
  - Product use issue [Unknown]
  - Tethered cord syndrome [Unknown]
  - Kyphosis [Unknown]
